FAERS Safety Report 10518458 (Version 1)
Quarter: 2014Q4

REPORT INFORMATION
  Report Type: Spontaneous
  Country: US (occurrence: None)
  Receive Date: 20141014
  Receipt Date: 20141014
  Transmission Date: 20150528
  Serious: Yes (Hospitalization)
  Sender: FDA-Public Use
  Company Number: None

PATIENT
  Age: 46 Year
  Sex: Male
  Weight: 93.2 kg

DRUGS (1)
  1. CLONIDINE. [Suspect]
     Active Substance: CLONIDINE
     Indication: HYPERTENSION
     Route: 061
     Dates: start: 20061017, end: 20061115

REACTIONS (8)
  - Dysphagia [None]
  - Pruritus [None]
  - Rash [None]
  - Dyspnoea [None]
  - Angioedema [None]
  - Pityriasis [None]
  - Lymphadenopathy [None]
  - Urticaria [None]

NARRATIVE: CASE EVENT DATE: 20061113
